FAERS Safety Report 23316652 (Version 2)
Quarter: 2025Q4

REPORT INFORMATION
  Report Type: Spontaneous
  Country: US (occurrence: US)
  Receive Date: 20231219
  Receipt Date: 20251219
  Transmission Date: 20260117
  Serious: No
  Sender: ROCHE
  Company Number: US-ROCHE-3388212

PATIENT
  Age: 15 Year
  Sex: Male

DRUGS (2)
  1. HEMLIBRA [Suspect]
     Active Substance: EMICIZUMAB-KXWH
     Indication: Factor VIII deficiency
     Dosage: STRENGTH-105MG/0.7ML
     Route: 058
     Dates: start: 201908
  2. HEMLIBRA [Suspect]
     Active Substance: EMICIZUMAB-KXWH
     Dosage: STRENGTH-105MG/0.7ML
     Route: 058
     Dates: start: 201908

REACTIONS (5)
  - Haemorrhage [Unknown]
  - Pain in extremity [Unknown]
  - Swelling [Unknown]
  - Contusion [Unknown]
  - Haemorrhage [Unknown]

NARRATIVE: CASE EVENT DATE: 20230705
